FAERS Safety Report 21457389 (Version 1)
Quarter: 2022Q4

REPORT INFORMATION
  Report Type: Spontaneous
  Country: US (occurrence: US)
  Receive Date: 20221014
  Receipt Date: 20221014
  Transmission Date: 20230113
  Serious: Yes (Other)
  Sender: FDA-Public Use
  Company Number: US-SUN PHARMACEUTICAL INDUSTRIES LTD-2022R1-358609

PATIENT
  Age: 17 Year

DRUGS (2)
  1. AMPHOTERICIN B [Suspect]
     Active Substance: AMPHOTERICIN B
     Indication: Product used for unknown indication
     Dosage: UNK
     Route: 065
  2. MICAFUNGIN [Suspect]
     Active Substance: MICAFUNGIN
     Indication: Product used for unknown indication
     Dosage: UNK, (PROLONGED)
     Route: 065

REACTIONS (2)
  - Arthritis [Unknown]
  - Drug ineffective [Unknown]
